FAERS Safety Report 11227906 (Version 1)
Quarter: 2015Q2

REPORT INFORMATION
  Report Type: Spontaneous
  Country: BR (occurrence: BR)
  Receive Date: 20150630
  Receipt Date: 20150630
  Transmission Date: 20150821
  Serious: Yes (Hospitalization)
  Sender: FDA-Public Use
  Company Number: BR-ABBVIE-15P-020-1418182-00

PATIENT
  Age: 38 Year
  Sex: Female
  Weight: 55 kg

DRUGS (4)
  1. SERTRALINE [Concomitant]
     Active Substance: SERTRALINE HYDROCHLORIDE
     Indication: DEPRESSION
     Dosage: DAILY DOSE: 50 MILLIGRAM:AT NIGHT
     Route: 048
     Dates: start: 20150529
  2. QUETIAPINE [Concomitant]
     Active Substance: QUETIAPINE
     Indication: DEPRESSION
     Dosage: DAILY DOSE: 75 MILLIGRAM:AT NIGHT
     Route: 048
     Dates: start: 20150529
  3. TOPIRAMATE. [Concomitant]
     Active Substance: TOPIRAMATE
     Indication: HEADACHE
     Dosage: DAILY DOSE: 25 MILLIGRAM:AT NIGHT
     Route: 048
     Dates: start: 20150529
  4. DEPAKENE [Suspect]
     Active Substance: VALPROIC ACID
     Indication: DEPRESSION
     Route: 048
     Dates: start: 20150529

REACTIONS (6)
  - Dysentery [Not Recovered/Not Resolved]
  - Diarrhoea [Not Recovered/Not Resolved]
  - Weight decreased [Not Recovered/Not Resolved]
  - Off label use [Not Recovered/Not Resolved]
  - Faeces soft [Not Recovered/Not Resolved]
  - Abdominal pain [Not Recovered/Not Resolved]

NARRATIVE: CASE EVENT DATE: 2015
